FAERS Safety Report 9416892 (Version 3)
Quarter: 2013Q4

REPORT INFORMATION
  Report Type: Report from Study
  Country: US (occurrence: US)
  Receive Date: 20130724
  Receipt Date: 20131029
  Transmission Date: 20140711
  Serious: Yes (Hospitalization)
  Sender: FDA-Public Use
  Company Number: US-ROCHE-1252304

PATIENT
  Age: 67 Year
  Sex: Male
  Weight: 84.9 kg

DRUGS (2)
  1. ZELBORAF [Suspect]
     Indication: METASTATIC MALIGNANT MELANOMA
     Route: 048
     Dates: start: 20130705, end: 20130718
  2. ZELBORAF [Suspect]
     Route: 048
     Dates: start: 20130718

REACTIONS (15)
  - Urticaria [Recovering/Resolving]
  - Dehydration [Not Recovered/Not Resolved]
  - Renal failure [Unknown]
  - Rash erythematous [Not Recovered/Not Resolved]
  - Blood glucose decreased [Recovered/Resolved]
  - Feeling hot [Unknown]
  - Pruritus [Recovering/Resolving]
  - Weight decreased [Not Recovered/Not Resolved]
  - Decreased appetite [Not Recovered/Not Resolved]
  - Retching [Not Recovered/Not Resolved]
  - Vomiting [Not Recovered/Not Resolved]
  - Arthralgia [Recovering/Resolving]
  - Rash pruritic [Recovering/Resolving]
  - Fatigue [Recovering/Resolving]
  - Somnolence [Recovering/Resolving]
